FAERS Safety Report 11732346 (Version 1)
Quarter: 2015Q4

REPORT INFORMATION
  Report Type: Spontaneous
  Country: US (occurrence: US)
  Receive Date: 20151110
  Receipt Date: 20151110
  Transmission Date: 20160304
  Serious: No
  Sender: FDA-Public Use
  Company Number: US-ELI_LILLY_AND_COMPANY-US201202001217

PATIENT
  Age: 85 Year
  Sex: Female

DRUGS (3)
  1. FORTEO [Suspect]
     Active Substance: TERIPARATIDE
     Indication: OSTEOPOROSIS
     Dosage: 20 UG, QD
  2. METFORMIN [Concomitant]
     Active Substance: METFORMIN HYDROCHLORIDE
  3. FORTEO [Suspect]
     Active Substance: TERIPARATIDE
     Dosage: 20 UG, QD

REACTIONS (3)
  - Blood glucose decreased [Unknown]
  - Hypoacusis [Not Recovered/Not Resolved]
  - Nausea [Unknown]

NARRATIVE: CASE EVENT DATE: 20120202
